FAERS Safety Report 5013253-6 (Version None)
Quarter: 2006Q2

REPORT INFORMATION
  Report Type: 
  Country: None (occurrence: None)
  Receive Date: 20060530
  Receipt Date: 20060329
  Transmission Date: 20061013
  Serious: No
  Sender: FDA-Public Use
  Company Number: US-GLAXOSMITHKLINE-A0599562A

PATIENT
  Sex: Female

DRUGS (3)
  1. WELLBUTRIN XL [Suspect]
     Indication: DEPRESSION
     Route: 048
     Dates: start: 20060329
  2. WELLBUTRIN [Suspect]
     Indication: DEPRESSION
     Route: 065
  3. KLONOPIN [Concomitant]

REACTIONS (10)
  - ANGER [None]
  - BALANCE DISORDER [None]
  - CRYING [None]
  - DRUG INEFFECTIVE [None]
  - EMOTIONAL DISTRESS [None]
  - FATIGUE [None]
  - FEELING ABNORMAL [None]
  - HOSTILITY [None]
  - ILL-DEFINED DISORDER [None]
  - WEIGHT INCREASED [None]
